FAERS Safety Report 13244015 (Version 1)
Quarter: 2017Q1

REPORT INFORMATION
  Report Type: Spontaneous
  Country: US (occurrence: US)
  Receive Date: 20170217
  Receipt Date: 20170217
  Transmission Date: 20170428
  Serious: Yes (Other)
  Sender: FDA-Public Use
  Company Number: None

PATIENT
  Age: 26 Year
  Sex: Female
  Weight: 74.39 kg

DRUGS (1)
  1. RISPERDAL CONSTA [Suspect]
     Active Substance: RISPERIDONE
     Indication: SCHIZOAFFECTIVE DISORDER
     Dosage: FREQUENCY - Q2WK
     Route: 030
     Dates: start: 20170110, end: 20170124

REACTIONS (5)
  - Lip swelling [None]
  - Eye swelling [None]
  - Oropharyngeal pain [None]
  - Peripheral swelling [None]
  - Rash pruritic [None]

NARRATIVE: CASE EVENT DATE: 20170125
